FAERS Safety Report 9631496 (Version 1)
Quarter: 2013Q4

REPORT INFORMATION
  Report Type: Spontaneous
  Country: FR (occurrence: FR)
  Receive Date: 20131018
  Receipt Date: 20131018
  Transmission Date: 20140711
  Serious: Yes (Hospitalization, Other)
  Sender: FDA-Public Use
  Company Number: FR-PFIZER INC-2013296299

PATIENT
  Age: 18 Year
  Sex: Female

DRUGS (10)
  1. EUPANTOL [Suspect]
     Dosage: 40 MG, DAILY
     Route: 042
     Dates: start: 20130827
  2. EUPANTOL [Suspect]
     Dosage: 40 MG, DAILY
     Route: 048
     Dates: end: 20130901
  3. INEXIUM [Suspect]
     Dosage: UNK
     Route: 048
     Dates: start: 20130715
  4. OXYNORM [Suspect]
     Dosage: UNK
     Route: 048
     Dates: start: 20130827, end: 20130901
  5. STILNOX [Suspect]
     Dosage: UNK
     Route: 048
     Dates: start: 20130827, end: 20130831
  6. ORFADIN [Suspect]
     Dosage: 25 MG, 2X/DAY
     Route: 048
  7. OXYCONTIN [Suspect]
     Dosage: 5 MG, 2X/DAY
     Route: 048
     Dates: start: 20130831, end: 20130901
  8. SPASFON [Suspect]
     Dosage: UNK
     Route: 042
     Dates: start: 20130827, end: 20130828
  9. SPASFON [Suspect]
     Dosage: UNK
     Route: 048
     Dates: end: 20130901
  10. GAVISCON [Suspect]
     Dosage: UNK
     Route: 048
     Dates: start: 20130829, end: 20130901

REACTIONS (2)
  - Convulsion [Recovered/Resolved]
  - Inappropriate antidiuretic hormone secretion [Recovered/Resolved]
